FAERS Safety Report 7656693-9 (Version None)
Quarter: 2011Q3

REPORT INFORMATION
  Report Type: 
  Country: None (occurrence: None)
  Receive Date: 20110804
  Receipt Date: 20110801
  Transmission Date: 20111222
  Serious: Yes (Other)
  Sender: FDA-Public Use
  Company Number: US-MERCK-1012USA02527

PATIENT
  Age: 57 Year
  Sex: Female

DRUGS (6)
  1. VITAMINS (UNSPECIFIED) [Concomitant]
     Route: 065
  2. VITAMIN D (UNSPECIFIED) [Concomitant]
     Route: 065
  3. MOBIC [Concomitant]
     Route: 065
  4. ATENOLOL [Concomitant]
     Route: 065
  5. FOSAMAX [Suspect]
     Indication: OSTEOPENIA
     Route: 048
     Dates: start: 20050701, end: 20100101
  6. SYNTHROID [Concomitant]
     Route: 065

REACTIONS (5)
  - FIBULA FRACTURE [None]
  - FEMUR FRACTURE [None]
  - FOOT FRACTURE [None]
  - HIP FRACTURE [None]
  - TIBIA FRACTURE [None]
